FAERS Safety Report 11717277 (Version 2)
Quarter: 2015Q4

REPORT INFORMATION
  Report Type: Spontaneous
  Country: JP (occurrence: JP)
  Receive Date: 20151109
  Receipt Date: 20151111
  Transmission Date: 20160304
  Serious: Yes (Disabling)
  Sender: FDA-Public Use
  Company Number: JP-AMGEN-JPNSP2015110127

PATIENT
  Age: 35 Year
  Sex: Female
  Weight: 63 kg

DRUGS (2)
  1. ENBREL [Suspect]
     Active Substance: ETANERCEPT
     Indication: RHEUMATOID ARTHRITIS
     Dosage: 25 MG, WEEKLY
     Route: 058
     Dates: start: 20100116, end: 20151002
  2. PREDONINE [Concomitant]
     Active Substance: PREDNISOLONE\PREDNISOLONE ACETATE\PREDNISOLONE SODIUM SUCCINATE
     Dosage: 5 MG, 1X/DAY
     Route: 048
     Dates: start: 20150124

REACTIONS (1)
  - Neuromyelitis optica [Not Recovered/Not Resolved]

NARRATIVE: CASE EVENT DATE: 2015
